FAERS Safety Report 16022382 (Version 1)
Quarter: 2019Q1

REPORT INFORMATION
  Report Type: Spontaneous
  Country: US (occurrence: US)
  Receive Date: 20190204
  Receipt Date: 20190204
  Transmission Date: 20190418
  Serious: Yes (Death, Hospitalization)
  Sender: FDA-Public Use
  Company Number: None

PATIENT
  Age: 34 Year
  Sex: Male
  Weight: 80.1 kg

DRUGS (2)
  1. DOXORUBICIN HYDROCHLORIDE. [Suspect]
     Active Substance: DOXORUBICIN HYDROCHLORIDE
     Dates: end: 20190119
  2. IFOSFAMIDE. [Suspect]
     Active Substance: IFOSFAMIDE
     Dates: end: 20190119

REACTIONS (16)
  - Neutropenia [None]
  - Nausea [None]
  - Hypotension [None]
  - Acidosis [None]
  - Pulmonary embolism [None]
  - Abdominal pain [None]
  - Dyspnoea [None]
  - Septic shock [None]
  - Gastrointestinal ischaemia [None]
  - Vomiting [None]
  - Colitis [None]
  - Pneumatosis [None]
  - Blood lactic acid increased [None]
  - Hyperkalaemia [None]
  - Acute kidney injury [None]
  - Ischaemic hepatitis [None]

NARRATIVE: CASE EVENT DATE: 20190126
